FAERS Safety Report 25166014 (Version 1)
Quarter: 2025Q2

REPORT INFORMATION
  Report Type: Spontaneous
  Country: JP (occurrence: JP)
  Receive Date: 20250407
  Receipt Date: 20250407
  Transmission Date: 20250717
  Serious: Yes (Life-Threatening, Hospitalization, Other)
  Sender: PANACEA BIOTEC
  Company Number: JP-PBT-010330

PATIENT
  Age: 33 Year
  Sex: Female

DRUGS (2)
  1. TACROLIMUS [Suspect]
     Active Substance: TACROLIMUS
     Indication: Systemic lupus erythematosus
     Route: 065
  2. HYDROXYCHLOROQUINE [Suspect]
     Active Substance: HYDROXYCHLOROQUINE
     Indication: Systemic lupus erythematosus
     Route: 065

REACTIONS (7)
  - Eclampsia [Recovered/Resolved]
  - Respiratory failure [Recovered/Resolved]
  - Atypical haemolytic uraemic syndrome [Recovering/Resolving]
  - Posterior reversible encephalopathy syndrome [Recovered/Resolved]
  - Pre-eclampsia [Recovered/Resolved]
  - Product use in unapproved indication [Unknown]
  - Exposure during pregnancy [Unknown]
